FAERS Safety Report 11636853 (Version 1)
Quarter: 2015Q4

REPORT INFORMATION
  Report Type: Spontaneous
  Country: US (occurrence: None)
  Receive Date: 20151015
  Receipt Date: 20151015
  Transmission Date: 20160304
  Serious: No
  Sender: FDA-Public Use
  Company Number: None

PATIENT
  Age: 28 Year
  Sex: Female
  Weight: 50.8 kg

DRUGS (3)
  1. FLAGYL [Suspect]
     Active Substance: METRONIDAZOLE\METRONIDAZOLE HYDROCHLORIDE
     Indication: AMOEBIASIS
     Dosage: 1 PILL THREE TIMES DAILY TAKEN BY MOUTH
     Route: 048
     Dates: start: 20151012, end: 20151013
  2. MULTIVITAMIN [Concomitant]
     Active Substance: VITAMINS
  3. FOLIC ACID SUPPLEMENTS [Concomitant]

REACTIONS (8)
  - Nausea [None]
  - Insomnia [None]
  - Hallucination, auditory [None]
  - Headache [None]
  - Peroneal nerve palsy [None]
  - Dizziness [None]
  - Hypoaesthesia [None]
  - Seizure [None]

NARRATIVE: CASE EVENT DATE: 20151013
